FAERS Safety Report 8947770 (Version 1)
Quarter: 2012Q4

REPORT INFORMATION
  Report Type: 
  Country: AU (occurrence: AU)
  Receive Date: 20121204
  Receipt Date: 20121204
  Transmission Date: 20130627
  Serious: Yes (Life-Threatening, Hospitalization)
  Sender: FDA-Public Use
  Company Number: AU-ASTRAZENECA-2012SE90267

PATIENT
  Age: 50 Year
  Sex: Female

DRUGS (3)
  1. FENTANYL [Suspect]
     Route: 065
  2. PROPOFOL [Suspect]
     Route: 042
  3. ROCURONIUM BROMIDE [Suspect]
     Route: 065
     Dates: start: 20121012, end: 20121012

REACTIONS (1)
  - Anaphylactic reaction [Recovered/Resolved]
